FAERS Safety Report 18264414 (Version 1)
Quarter: 2020Q3

REPORT INFORMATION
  Report Type: Spontaneous
  Country: DE (occurrence: DE)
  Receive Date: 20200914
  Receipt Date: 20200914
  Transmission Date: 20201103
  Serious: Yes (Other)
  Sender: FDA-Public Use
  Company Number: DE-PFIZER INC-2020350537

PATIENT

DRUGS (1)
  1. CYTOTEC [Suspect]
     Active Substance: MISOPROSTOL
     Indication: LABOUR INDUCTION
     Dosage: 650UG, UNK (13X50UG)
     Route: 064
     Dates: start: 20200409, end: 20200414

REACTIONS (6)
  - Vital functions abnormal [Recovered/Resolved with Sequelae]
  - Foetal exposure during pregnancy [Unknown]
  - Foetal heart rate decreased [Recovered/Resolved with Sequelae]
  - Neonatal infection [Recovered/Resolved with Sequelae]
  - Developmental coordination disorder [Not Recovered/Not Resolved]
  - Cough [Not Recovered/Not Resolved]

NARRATIVE: CASE EVENT DATE: 202004
